FAERS Safety Report 13024684 (Version 1)
Quarter: 2016Q4

REPORT INFORMATION
  Report Type: Spontaneous
  Country: US (occurrence: US)
  Receive Date: 20161213
  Receipt Date: 20161213
  Transmission Date: 20170207
  Serious: No
  Sender: FDA-Public Use
  Company Number: US-ROCHE-1739846

PATIENT
  Age: 87 Year
  Sex: Female
  Weight: 90 kg

DRUGS (13)
  1. ACETYLCYSTEINE/BENZALKONIUM CHLORIDE/TUAMINOHEPTANE SULFATE [Concomitant]
  2. DIGOXIN. [Concomitant]
     Active Substance: DIGOXIN
     Dosage: EVERY MORNING.
     Route: 048
  3. GABAPENTIN. [Concomitant]
     Active Substance: GABAPENTIN
     Route: 048
  4. LEXAPRO [Concomitant]
     Active Substance: ESCITALOPRAM OXALATE
     Route: 048
  5. PRAVASTATIN. [Concomitant]
     Active Substance: PRAVASTATIN
     Indication: BLOOD CHOLESTEROL
     Route: 048
  6. AL HYDROXIDE, MG HYDROXIDE + SIMETHICONE [Concomitant]
     Indication: DYSPEPSIA
     Dosage: AS REQUIRED.
     Route: 048
  7. OMEPRAZOLE. [Concomitant]
     Active Substance: OMEPRAZOLE
     Route: 048
  8. ACTIVASE [Suspect]
     Active Substance: ALTEPLASE
     Indication: CEREBROVASCULAR ACCIDENT
     Dosage: OVER ONE HOUR.
     Route: 042
     Dates: start: 20160407
  9. ACTIVASE [Suspect]
     Active Substance: ALTEPLASE
     Indication: CEREBROVASCULAR ACCIDENT
     Dosage: 10%.
     Route: 040
     Dates: start: 20160407
  10. CLONIDINE. [Concomitant]
     Active Substance: CLONIDINE
     Dosage: WHEN REQUIRED.
     Route: 048
  11. LISINOPRIL. [Concomitant]
     Active Substance: LISINOPRIL
     Indication: HYPERTENSION
     Dosage: EVERY MORNING.
     Route: 048
  12. METOPROLOL. [Concomitant]
     Active Substance: METOPROLOL
     Indication: HYPERTENSION
     Dosage: HALF TABLET TWICE A DAY.
     Route: 048
  13. VITAMIN D3 [Concomitant]
     Active Substance: CHOLECALCIFEROL
     Indication: VITAMIN D DEFICIENCY
     Dosage: EVERY MORNING.
     Route: 048

REACTIONS (1)
  - Urticaria [Recovered/Resolved]

NARRATIVE: CASE EVENT DATE: 20160407
